FAERS Safety Report 7739773-9 (Version None)
Quarter: 2011Q3

REPORT INFORMATION
  Report Type: 
  Country: None (occurrence: None)
  Receive Date: 20110909
  Receipt Date: 20110829
  Transmission Date: 20111222
  Serious: Yes (Other)
  Sender: FDA-Public Use
  Company Number: US-BAYER-2011-009129

PATIENT
  Age: 21 Year
  Sex: Female

DRUGS (2)
  1. YAZ [Suspect]
     Indication: CONTRACEPTION
     Dosage: UNK
     Dates: start: 20081103, end: 20081225
  2. YASMIN [Suspect]
     Indication: CONTRACEPTION
     Dosage: UNK
     Dates: start: 20081103, end: 20081225

REACTIONS (8)
  - GALLBLADDER INJURY [None]
  - CHOLELITHIASIS [None]
  - PAIN [None]
  - JAUNDICE [None]
  - EMOTIONAL DISTRESS [None]
  - BILE DUCT STONE [None]
  - CHOLECYSTITIS [None]
  - INJURY [None]
